FAERS Safety Report 8785230 (Version 1)
Quarter: 2012Q4

REPORT INFORMATION
  Report Type: Spontaneous
  Country: PL (occurrence: None)
  Receive Date: 20120831
  Receipt Date: 20120831
  Transmission Date: 20130627
  Serious: Yes (Disabling)
  Sender: FDA-Public Use
  Company Number: 2012DEPPL00409

PATIENT
  Sex: Male

DRUGS (4)
  1. DEPOCYTE [Suspect]
     Indication: PROPHYLAXIS
     Route: 037
     Dates: start: 2012
  2. DEPOCYTE [Suspect]
     Indication: ACUTE LYMPHOCYTIC LEUKEMIA
     Route: 037
     Dates: start: 2012
  3. CYCLOPHOSPHAMIDE [Concomitant]
  4. ASPARAGINASE (ASPARAGINASE) [Concomitant]

REACTIONS (6)
  - Epilepsy [None]
  - Agitation [None]
  - Aggression [None]
  - Confusional state [None]
  - Depression [None]
  - Anger [None]
